FAERS Safety Report 16011424 (Version 1)
Quarter: 2019Q1

REPORT INFORMATION
  Report Type: Spontaneous
  Country: DK (occurrence: DK)
  Receive Date: 20190227
  Receipt Date: 20190227
  Transmission Date: 20190418
  Serious: Yes (Hospitalization)
  Sender: FDA-Public Use
  Company Number: DK-TEVA-2019-DK-1015984

PATIENT
  Age: 81 Year
  Sex: Male

DRUGS (12)
  1. RAMIPRIL ^TEVA^ [Suspect]
     Active Substance: RAMIPRIL
     Indication: HYPERTENSION
     Dosage: 2.5 MILLIGRAM DAILY;
     Route: 048
     Dates: start: 201710, end: 20190122
  2. AMLODIPINE [Concomitant]
     Active Substance: AMLODIPINE BESYLATE
     Indication: HYPERTENSION
     Dosage: 5 MILLIGRAM DAILY;
     Route: 048
     Dates: start: 20170310
  3. METHOTREXATE. [Concomitant]
     Active Substance: METHOTREXATE
     Indication: PSORIATIC ARTHROPATHY
     Route: 048
     Dates: start: 20141001
  4. SIMVASTATIN. [Concomitant]
     Active Substance: SIMVASTATIN
     Indication: CARDIOVASCULAR EVENT PROPHYLAXIS
     Dosage: 40 MILLIGRAM DAILY;
     Route: 048
     Dates: start: 20120606
  5. PEVISONE [Concomitant]
     Active Substance: ECONAZOLE
     Indication: ECZEMA INFECTED
     Dosage: STRENGTH: 10 + 1 MG/G. DOSE: MAXIMUM 2 TIMES DAILY
     Route: 003
     Dates: start: 20180112
  6. CALCIUM OG D-VITAMIN [Concomitant]
     Indication: MINERAL SUPPLEMENTATION
     Dosage: STYRKE: 400 MG + 19 ?G
     Route: 048
     Dates: start: 20150325
  7. FOLIMET [Concomitant]
     Active Substance: FOLIC ACID
     Indication: ADVERSE DRUG REACTION
     Dosage: STYRKE: 5 MG
     Route: 048
     Dates: start: 20141001
  8. METOPROLOL TARTRATE. [Concomitant]
     Active Substance: METOPROLOL TARTRATE
     Indication: HYPERTENSION
     Dosage: 25 MILLIGRAM DAILY;
     Route: 048
     Dates: start: 20171002
  9. CENTYL MED KALIUMKLORID [Concomitant]
     Active Substance: BENDROFLUMETHIAZIDE\POTASSIUM CHLORIDE
     Indication: HYPERTENSION
     Dosage: 1 DOSAGE FORMS DAILY; STRENGTH: 2,5 + 573 MG
     Route: 048
     Dates: start: 20171212
  10. LANTUS SOLOSTAR [Suspect]
     Active Substance: INSULIN GLARGINE
     Indication: DIABETES MELLITUS
     Dosage: 32 IU (INTERNATIONAL UNIT) DAILY; STRENGTH:  100E/ML
     Route: 058
     Dates: start: 201812, end: 20190122
  11. PANTOPRAZOLE SODIUM SESQUIHYDRATE [Concomitant]
     Active Substance: PANTOPRAZOLE SODIUM
     Indication: PROPHYLAXIS AGAINST GASTROINTESTINAL ULCER
     Dosage: 40 MILLIGRAM DAILY;
     Route: 048
     Dates: start: 20160908
  12. ALLOPURINOL. [Concomitant]
     Active Substance: ALLOPURINOL
     Indication: GOUTY ARTHRITIS
     Dosage: 300 MILLIGRAM DAILY;
     Route: 048
     Dates: start: 20160908

REACTIONS (2)
  - Angioedema [Recovering/Resolving]
  - Swelling face [Recovering/Resolving]

NARRATIVE: CASE EVENT DATE: 20190122
